FAERS Safety Report 15577736 (Version 3)
Quarter: 2018Q4

REPORT INFORMATION
  Report Type: Spontaneous
  Country: JP (occurrence: JP)
  Receive Date: 20181102
  Receipt Date: 20181116
  Transmission Date: 20190205
  Serious: Yes (Other)
  Sender: FDA-Public Use
  Company Number: JP-ASTRAZENECA-2018SF42843

PATIENT
  Age: 52 Year
  Sex: Female

DRUGS (4)
  1. LEUPLIN [Concomitant]
     Active Substance: LEUPROLIDE ACETATE
  2. FASLODEX [Suspect]
     Active Substance: FULVESTRANT
     Indication: BREAST CANCER FEMALE
     Dosage: 500 MG, 1
     Route: 030
  3. RANMARK [Concomitant]
     Active Substance: DENOSUMAB
  4. IBRANCE [Concomitant]
     Active Substance: PALBOCICLIB
     Dates: start: 20180710

REACTIONS (3)
  - Pathological fracture [Not Recovered/Not Resolved]
  - Rash [Not Recovered/Not Resolved]
  - Metastases to bone [Unknown]

NARRATIVE: CASE EVENT DATE: 20180829
